FAERS Safety Report 23079455 (Version 2)
Quarter: 2025Q1

REPORT INFORMATION
  Report Type: Report from Study
  Country: US (occurrence: US)
  Receive Date: 20231018
  Receipt Date: 20250131
  Transmission Date: 20250408
  Serious: Yes (Other)
  Sender: RECORDATI
  Company Number: US-ORPHANEU-2023007261

PATIENT

DRUGS (20)
  1. CYSTADANE [Suspect]
     Active Substance: BETAINE
     Indication: Methylenetetrahydrofolate reductase deficiency
     Dosage: 10 GRAM, BID
     Route: 048
     Dates: start: 20140701, end: 20250109
  2. CYSTADANE [Suspect]
     Active Substance: BETAINE
     Indication: Amino acid metabolism disorder
     Dosage: 7 GM IN THE MORNING, 7 GM IN THE MIDDAY AND 6 GM IN THE EVENING (TID)
     Route: 048
     Dates: start: 202501
  3. MIRALAX [Concomitant]
     Active Substance: POLYETHYLENE GLYCOL 3350
     Indication: Product used for unknown indication
     Dosage: 1-3 TABLESPOON, QD
     Route: 048
     Dates: start: 20090501
  4. PHENOBARBITAL [Concomitant]
     Active Substance: PHENOBARBITAL
     Indication: Product used for unknown indication
     Dosage: 100 MG, BID
     Route: 048
     Dates: start: 20090501
  5. FOLIC ACID [Concomitant]
     Active Substance: FOLIC ACID
     Indication: Product used for unknown indication
     Dosage: 1 MG, QD
     Route: 048
     Dates: start: 20090501
  6. HYDROXOCOBALAMIN [Concomitant]
     Active Substance: HYDROXOCOBALAMIN
     Indication: Product used for unknown indication
     Dosage: 0.2 MILLILITER, QD (INJECTION)
     Route: 030
     Dates: start: 20090501
  7. CLONAZEPAM [Concomitant]
     Active Substance: CLONAZEPAM
     Indication: Product used for unknown indication
     Route: 048
     Dates: start: 20090501
  8. KEPPRA [Concomitant]
     Active Substance: LEVETIRACETAM
     Indication: Product used for unknown indication
     Dosage: 4 MILLILITER, QD
  9. KEPPRA [Concomitant]
     Active Substance: LEVETIRACETAM
     Dosage: 4 MILLILITER, BID
     Route: 048
     Dates: start: 20140701
  10. VITAMIN B6 [Concomitant]
     Active Substance: PYRIDOXINE HYDROCHLORIDE
     Indication: Product used for unknown indication
     Dosage: 100 MG, BID
     Route: 048
     Dates: start: 20090501
  11. ELECARE JR [Concomitant]
     Indication: Product used for unknown indication
     Dosage: 42 OZ, QD
     Route: 048
     Dates: start: 20090501
  12. TENEX [Concomitant]
     Active Substance: GUANFACINE HYDROCHLORIDE
     Indication: Product used for unknown indication
     Dosage: 1 MG, QD
     Route: 048
     Dates: start: 20160801
  13. ALENDRONATE SODIUM [Concomitant]
     Active Substance: ALENDRONATE SODIUM
     Indication: Product used for unknown indication
     Dosage: 10 MG, QOD (10 MG TABLET)
     Route: 048
     Dates: start: 20220826
  14. VITAMIN B [Concomitant]
     Active Substance: VITAMIN B
     Indication: Product used for unknown indication
     Dosage: 50000 INTERNATIONAL UNIT ONCE A WEEK
  15. LAMOTRIGINE [Concomitant]
     Active Substance: LAMOTRIGINE
     Indication: Product used for unknown indication
     Dosage: 75 MG, BID (25 MG TABLET)
     Route: 048
     Dates: start: 20231005
  16. CLONIDINE HYDROCHLORIDE [Concomitant]
     Active Substance: CLONIDINE HYDROCHLORIDE
     Indication: Product used for unknown indication
     Dosage: 0.1 MG, BID (0.1 MG TABLET)
     Route: 048
     Dates: start: 20231005
  17. LEVOCARNITINE [Concomitant]
     Active Substance: LEVOCARNITINE
     Indication: Product used for unknown indication
     Dosage: 2 MILLILITER, QD
  18. LEVOCARNITINE [Concomitant]
     Active Substance: LEVOCARNITINE
     Dosage: 2 MILLILITER, BID
     Route: 048
     Dates: start: 20090501
  19. CHILDRENS TYLENOL [Concomitant]
     Active Substance: ACETAMINOPHEN
     Indication: Product used for unknown indication
     Route: 048
     Dates: start: 20090501
  20. VITAMIN D [Concomitant]
     Active Substance: VITAMIN D NOS
     Indication: Product used for unknown indication
     Dosage: 50000 UNIT, QW (CAPSULE)
     Route: 048
     Dates: start: 20230201

REACTIONS (3)
  - Seizure [Not Recovered/Not Resolved]
  - Condition aggravated [Not Recovered/Not Resolved]
  - Off label use [Recovered/Resolved]

NARRATIVE: CASE EVENT DATE: 20230909
